FAERS Safety Report 8093902-9 (Version None)
Quarter: 2012Q1

REPORT INFORMATION
  Report Type: 
  Country: None (occurrence: None)
  Receive Date: 20120131
  Receipt Date: 20120124
  Transmission Date: 20120608
  Serious: Yes (Other)
  Sender: FDA-Public Use
  Company Number: PHEH2012US000526

PATIENT
  Sex: Male
  Weight: 75.737 kg

DRUGS (10)
  1. VIDAZA [Concomitant]
     Dosage: 71.8 MG/M2, DAILY FOR 1 DAY
  2. TRIAMCINOLONE ACETONIDE [Concomitant]
  3. FLOMAX [Concomitant]
     Dosage: 0.4 MG, QD
     Route: 048
  4. KENALOG [Concomitant]
  5. VITAMIN B COMPLEX CAP [Concomitant]
     Dosage: 1 DF, QD
     Route: 048
  6. EXJADE [Suspect]
     Indication: IRON OVERLOAD
  7. LOTRISONE [Concomitant]
     Dosage: 0.05 %, BID
  8. NEXIUM [Concomitant]
     Dosage: 40 MG, UNK
     Route: 048
  9. LOPERAMIDE HCL [Concomitant]
     Dosage: 2 MG, EVERY MORNING
     Route: 048
  10. EXJADE [Suspect]
     Indication: ANAEMIA HAEMOLYTIC AUTOIMMUNE
     Dosage: 1000 MG, DAILY
     Route: 048
     Dates: start: 20060719

REACTIONS (11)
  - MALAISE [None]
  - CHEST PAIN [None]
  - LIVER DISORDER [None]
  - FATIGUE [None]
  - HUMERUS FRACTURE [None]
  - DERMATITIS CONTACT [None]
  - MYELODYSPLASTIC SYNDROME [None]
  - RENAL FAILURE CHRONIC [None]
  - NEPHROGENIC ANAEMIA [None]
  - BLOOD PRESSURE DIASTOLIC DECREASED [None]
  - BODY MASS INDEX INCREASED [None]
